FAERS Safety Report 25077665 (Version 2)
Quarter: 2025Q1

REPORT INFORMATION
  Report Type: Report from Study
  Country: TW (occurrence: TW)
  Receive Date: 20250314
  Receipt Date: 20250317
  Transmission Date: 20250408
  Serious: Yes (Hospitalization)
  Sender: BIOGEN
  Company Number: TW-BIOGEN-2025BI01303655

PATIENT
  Age: 6 Year
  Sex: Male

DRUGS (1)
  1. SPINRAZA [Suspect]
     Active Substance: NUSINERSEN
     Indication: Spinal muscular atrophy
     Dosage: 4 LOADING DOSES ON DAYS 0, 14, 28 AND 63. MAINTENANCE DOSE ADMINISTERED ONCE EVERY 4 MONTHS THERE...
     Route: 050
     Dates: start: 2022

REACTIONS (2)
  - Dyspnoea [Recovered/Resolved]
  - Pyrexia [Recovered/Resolved]

NARRATIVE: CASE EVENT DATE: 20250306
